FAERS Safety Report 8013247-2 (Version None)
Quarter: 2011Q4

REPORT INFORMATION
  Report Type: 
  Country: None (occurrence: None)
  Receive Date: 20111229
  Receipt Date: 20111228
  Transmission Date: 20120403
  Serious: No
  Sender: FDA-Public Use
  Company Number: IT-SANOFI-AVENTIS-2011SA043270

PATIENT
  Age: 65 Year
  Sex: Female

DRUGS (8)
  1. ATORVASTATIN [Concomitant]
     Route: 065
  2. NEBIVOLOL HCL [Concomitant]
     Route: 065
  3. DUOPLAVIN [Concomitant]
     Route: 065
  4. MULTAQ [Suspect]
     Route: 048
     Dates: start: 20110520, end: 20110630
  5. CALCITRIOL [Concomitant]
     Dosage: DOSE:0.5 UNIT(S)
     Route: 065
  6. CATAPRESAN /GFR/ [Concomitant]
     Route: 065
  7. CALCIUM CARBONATE [Concomitant]
     Dosage: DOSE:1000 UNIT(S)
     Route: 065
  8. MYCOPHENOLATE MOFETIL (CELLCEPT) [Concomitant]
     Route: 065

REACTIONS (3)
  - BLOOD CREATININE INCREASED [None]
  - TRANSAMINASES INCREASED [None]
  - BLOOD UREA INCREASED [None]
